FAERS Safety Report 7980412-X (Version None)
Quarter: 2011Q4

REPORT INFORMATION
  Report Type: 
  Country: None (occurrence: None)
  Receive Date: 20111214
  Receipt Date: 20111208
  Transmission Date: 20120403
  Serious: Yes (Death, Life-Threatening, Hospitalization, Other)
  Sender: FDA-Public Use
  Company Number: FR-ELI_LILLY_AND_COMPANY-FR201108007590

PATIENT
  Age: 43 Year
  Sex: Male
  Weight: 80 kg

DRUGS (5)
  1. HEPARIN [Concomitant]
     Indication: INTRACARDIAC THROMBUS
     Dosage: UNK
     Dates: start: 20110315, end: 20110317
  2. PREVISCAN [Concomitant]
     Indication: INTRACARDIAC THROMBUS
     Dosage: UNK
     Dates: start: 20110317, end: 20110423
  3. EFFIENT [Suspect]
     Dosage: 10 MG, QD
     Route: 048
     Dates: start: 20110313, end: 20110423
  4. ASPIRIN [Concomitant]
     Indication: ACUTE CORONARY SYNDROME
     Dosage: 75 MG, QD
     Route: 048
     Dates: start: 20110312
  5. EFFIENT [Suspect]
     Indication: ACUTE CORONARY SYNDROME
     Dosage: 60 MG, SINGLE LOADING DOSE
     Route: 048
     Dates: start: 20110312, end: 20110312

REACTIONS (2)
  - INTRACARDIAC THROMBUS [None]
  - CEREBELLAR HAEMATOMA [None]
